FAERS Safety Report 7228508-4 (Version None)
Quarter: 2011Q1

REPORT INFORMATION
  Report Type: 
  Country: None (occurrence: None)
  Receive Date: 20110117
  Receipt Date: 20110106
  Transmission Date: 20110831
  Serious: Yes (Hospitalization)
  Sender: FDA-Public Use
  Company Number: US-BIOGENIDEC-2009BI027408

PATIENT
  Age: 60 Year
  Sex: Female

DRUGS (25)
  1. SOMA [Concomitant]
     Route: 048
  2. GABITRIL [Concomitant]
     Route: 048
  3. DOMPERIDONE [Concomitant]
  4. METFORMIN HCL [Concomitant]
     Route: 048
  5. FAMOTIDINE [Concomitant]
  6. ATENOLOL [Concomitant]
     Route: 048
  7. INSULIN [Concomitant]
  8. POTASSIUM CHLORIDE [Concomitant]
     Route: 048
  9. SYNTHROID [Concomitant]
     Route: 048
  10. VITAMIN B-12 [Concomitant]
  11. BENADRYL [Concomitant]
  12. PROVIGIL [Concomitant]
     Route: 048
  13. SINGULAIR [Concomitant]
     Route: 048
  14. AMBIEN [Concomitant]
  15. PAXIL [Concomitant]
     Route: 048
  16. PRAVACHOL [Concomitant]
     Route: 048
  17. REGLAN [Concomitant]
     Route: 048
  18. BACLOFEN [Concomitant]
     Route: 048
  19. VERSED [Concomitant]
  20. FENTANYL-100 [Concomitant]
  21. TYSABRI [Suspect]
     Indication: MULTIPLE SCLEROSIS
     Route: 042
     Dates: start: 20090113
  22. VOLTAREN-XR [Concomitant]
  23. PLAVIX [Concomitant]
  24. FERROUS SULFATE [Concomitant]
     Route: 048
  25. ASPIRIN [Concomitant]
     Route: 048

REACTIONS (3)
  - CHEST PAIN [None]
  - ANGINA UNSTABLE [None]
  - COMMINUTED FRACTURE [None]
